FAERS Safety Report 4427515-4 (Version None)
Quarter: 2004Q3

REPORT INFORMATION
  Report Type: 
  Country: None (occurrence: None)
  Receive Date: 20040817
  Receipt Date: 20040810
  Transmission Date: 20050211
  Serious: Yes (Hospitalization)
  Sender: FDA-Public Use
  Company Number: FR-MERCK-0408FRA00021

PATIENT
  Age: 65 Year
  Sex: Male
  Weight: 63 kg

DRUGS (12)
  1. COZAAR [Suspect]
     Indication: HYPERTENSION
     Route: 048
  2. METHOTREXATE [Suspect]
     Indication: RHEUMATOID ARTHRITIS
     Route: 048
     Dates: start: 20000715, end: 20010101
  3. OMEPRAZOLE [Concomitant]
     Indication: PROPHYLAXIS AGAINST GASTROINTESTINAL ULCER
     Route: 048
  4. PRAVASTATIN SODIUM [Concomitant]
     Indication: HYPERCHOLESTEROLAEMIA
     Route: 048
  5. TRAMADOL HYDROCHLORIDE [Concomitant]
     Indication: RHEUMATOID ARTHRITIS
     Route: 048
  6. ASPIRIN LYSINE [Concomitant]
     Indication: THROMBOSIS PROPHYLAXIS
     Route: 048
  7. BISOPROLOL [Concomitant]
     Indication: HYPERTENSION
     Route: 048
  8. CHLORAMBUCIL [Suspect]
     Indication: RHEUMATOID ARTHRITIS
     Route: 048
  9. ETANERCEPT [Suspect]
     Indication: RHEUMATOID ARTHRITIS
     Route: 058
     Dates: start: 20000316, end: 20000622
  10. FUROSEMIDE [Concomitant]
     Indication: HYPERTENSION
     Route: 048
  11. INFLIXIMAB [Suspect]
     Indication: RHEUMATOID ARTHRITIS
     Route: 042
     Dates: start: 20000710
  12. LEFLUNOMIDE [Suspect]
     Indication: RHEUMATOID ARTHRITIS
     Route: 048
     Dates: start: 20010118, end: 20040101

REACTIONS (6)
  - CROHN'S DISEASE [None]
  - DIARRHOEA [None]
  - EPIDURITIS [None]
  - JEJUNAL ULCER [None]
  - NON-HODGKIN'S LYMPHOMA [None]
  - OESOPHAGEAL ULCER [None]
